FAERS Safety Report 19215408 (Version 2)
Quarter: 2021Q3

REPORT INFORMATION
  Report Type: Spontaneous
  Country: FR (occurrence: FR)
  Receive Date: 20210505
  Receipt Date: 20210917
  Transmission Date: 20211014
  Serious: Yes (Hospitalization, Other)
  Sender: FDA-Public Use
  Company Number: FR-LEO PHARMA-336224

PATIENT
  Age: 78 Year
  Sex: Male

DRUGS (1)
  1. ENSTILAR [Suspect]
     Active Substance: BETAMETHASONE DIPROPIONATE\CALCIPOTRIENE HYDRATE
     Indication: PSORIASIS
     Route: 061
     Dates: start: 202104, end: 202104

REACTIONS (1)
  - Pemphigoid [Recovering/Resolving]

NARRATIVE: CASE EVENT DATE: 202104
